FAERS Safety Report 8659936 (Version 3)
Quarter: 2013Q1

REPORT INFORMATION
  Report Type: Spontaneous
  Country: BR (occurrence: BR)
  Receive Date: 20120711
  Receipt Date: 20130111
  Transmission Date: 20140127
  Serious: Yes (Death, Hospitalization, Other)
  Sender: FDA-Public Use
  Company Number: PHHY2010BR88690

PATIENT
  Sex: Male

DRUGS (8)
  1. DIOVAN [Suspect]
     Dosage: 80 MG, UNK
     Route: 048
  2. IBRIO [Suspect]
     Indication: RENAL DISORDER
     Dosage: 1 DF, DAILY
     Dates: start: 201105
  3. ASPIRINA PREVENT [Suspect]
     Indication: BLOOD DISORDER
     Dosage: 1 DF, DAILY AFTER THE LUNCH
     Dates: start: 2009, end: 2011
  4. MONOCORDIL [Suspect]
     Indication: CARDIAC DISORDER
     Dosage: 1 DF, IN THE MORNING
     Dates: end: 2010
  5. SOMALGIN [Suspect]
     Indication: CARDIAC DISORDER
     Dosage: 81 MG
     Dates: start: 2011
  6. OMEPRAZOLE [Concomitant]
     Indication: GASTRIC DISORDER
     Dosage: 1 DF, DAILY
     Route: 048
     Dates: start: 2010
  7. RANITIDINE HYDROCHLORIDE [Concomitant]
     Indication: GASTRIC DISORDER
     Route: 048
     Dates: start: 20110414
  8. SIMVASTATIN [Concomitant]
     Indication: BLOOD CHOLESTEROL ABNORMAL
     Route: 048
     Dates: start: 20110414

REACTIONS (9)
  - Multi-organ failure [Fatal]
  - Cardio-respiratory arrest [Fatal]
  - Pneumonia [Fatal]
  - Cough [Fatal]
  - Fatigue [Fatal]
  - Blood pressure decreased [Recovering/Resolving]
  - Blood cholesterol abnormal [Unknown]
  - Decreased appetite [Not Recovered/Not Resolved]
  - Gastric disorder [Unknown]
